FAERS Safety Report 9501384 (Version 1)
Quarter: 2013Q1

REPORT INFORMATION
  Report Type: Spontaneous
  Country: US (occurrence: None)
  Receive Date: 20130225
  Receipt Date: 20130225
  Transmission Date: 20140127
  Serious: No
  Sender: FDA-Public Use
  Company Number: 2012-558

PATIENT
  Sex: Male

DRUGS (1)
  1. PRIALT (ZICONOTIDE) INTRATHECAL INFUSION [Suspect]
     Indication: BACK PAIN
     Dosage: 4MCG, ONE TIME BOLUS, INTRTHECAL

REACTIONS (7)
  - Urinary retention [None]
  - Fatigue [None]
  - Dysarthria [None]
  - Musculoskeletal stiffness [None]
  - Meningitis [None]
  - Insomnia [None]
  - Amnesia [None]
